FAERS Safety Report 7622655-0 (Version None)
Quarter: 2011Q3

REPORT INFORMATION
  Report Type: 
  Country: None (occurrence: None)
  Receive Date: 20110719
  Receipt Date: 20110719
  Transmission Date: 20111222
  Serious: Yes (Other)
  Sender: FDA-Public Use
  Company Number: None

PATIENT
  Sex: Female
  Weight: 69.8539 kg

DRUGS (1)
  1. FLUVOXAMINE MALEATE [Suspect]
     Indication: TRICHOTILLOMANIA
     Dosage: 100MG QD ORAL
     Route: 048
     Dates: start: 20110620, end: 20110706

REACTIONS (4)
  - HEADACHE [None]
  - CONSTIPATION [None]
  - TREMOR [None]
  - INSOMNIA [None]
